FAERS Safety Report 8402737-6 (Version None)
Quarter: 2012Q2

REPORT INFORMATION
  Report Type: 
  Country: None (occurrence: None)
  Receive Date: 20120601
  Receipt Date: 20120530
  Transmission Date: 20120825
  Serious: Yes (Other)
  Sender: FDA-Public Use
  Company Number: US-BAYER-2012-053668

PATIENT
  Age: 13 Year
  Sex: Female

DRUGS (1)
  1. GADOPENTETATE DIMEGLUMINE [Suspect]
     Indication: NUCLEAR MAGNETIC RESONANCE IMAGING

REACTIONS (6)
  - SOFT TISSUE DISORDER [None]
  - URTICARIA [None]
  - CONTRAST MEDIA ALLERGY [None]
  - TACHYCARDIA [None]
  - DYSPNOEA [None]
  - FLUSHING [None]
